FAERS Safety Report 20179786 (Version 1)
Quarter: 2021Q4

REPORT INFORMATION
  Report Type: Spontaneous
  Country: NL (occurrence: NL)
  Receive Date: 20211214
  Receipt Date: 20211214
  Transmission Date: 20220303
  Serious: Yes (Life-Threatening, Hospitalization)
  Sender: FDA-Public Use
  Company Number: None

PATIENT
  Age: 56 Year
  Weight: 88 kg

DRUGS (1)
  1. NITROGLYCERIN [Suspect]
     Active Substance: NITROGLYCERIN
     Indication: Cardiac discomfort
     Dosage: UNK (ZO NODIG, STRENGTH:0.4 MG/DO)
     Route: 065

REACTIONS (5)
  - Cyanosis [Unknown]
  - Nausea [Unknown]
  - Seizure [Unknown]
  - Syncope [Unknown]
  - Pallor [Unknown]

NARRATIVE: CASE EVENT DATE: 20211107
